FAERS Safety Report 8439874-6 (Version None)
Quarter: 2012Q2

REPORT INFORMATION
  Report Type: 
  Country: None (occurrence: None)
  Receive Date: 20120615
  Receipt Date: 20120611
  Transmission Date: 20120825
  Serious: Yes (Other)
  Sender: FDA-Public Use
  Company Number: PHHY2011CA108860

PATIENT
  Sex: Female

DRUGS (1)
  1. GILENYA [Suspect]
     Indication: RELAPSING-REMITTING MULTIPLE SCLEROSIS
     Dosage: 0.5 MG, DAILY
     Route: 048
     Dates: start: 20111119, end: 20111231

REACTIONS (6)
  - DIZZINESS [None]
  - ANXIETY [None]
  - OCULAR ICTERUS [None]
  - MEMORY IMPAIRMENT [None]
  - FATIGUE [None]
  - PAIN IN EXTREMITY [None]
